FAERS Safety Report 21499358 (Version 1)
Quarter: 2022Q4

REPORT INFORMATION
  Report Type: Report from Study
  Country: US (occurrence: US)
  Receive Date: 20221024
  Receipt Date: 20221024
  Transmission Date: 20230113
  Serious: Yes (Death, Other)
  Sender: FDA-Public Use
  Company Number: US-BAYER-2022A142080

PATIENT
  Age: 14 Year
  Sex: Male

DRUGS (2)
  1. SORAFENIB [Suspect]
     Active Substance: SORAFENIB
     Indication: Acute myeloid leukaemia
     Dosage: 600 MG DAILY (300 MG BID)
     Route: 048
  2. AZACITIDINE [Concomitant]
     Active Substance: AZACITIDINE
     Dosage: 3 CYCLES

REACTIONS (4)
  - Infection [Fatal]
  - Cytopenia [None]
  - Minimal residual disease [None]
  - Off label use [None]
